FAERS Safety Report 4883801-5 (Version None)
Quarter: 2006Q1

REPORT INFORMATION
  Report Type: 
  Country: None (occurrence: None)
  Receive Date: 20060113
  Receipt Date: 20051227
  Transmission Date: 20060701
  Serious: Yes (Other)
  Sender: FDA-Public Use
  Company Number: USA0509107875

PATIENT
  Age: 9 Year
  Sex: Male
  Weight: 29.1 kg

DRUGS (3)
  1. STRATTERA [Suspect]
     Dosage: 60 MG EACH MORNING
     Dates: start: 20030416, end: 20050824
  2. DEXEDRINE [Concomitant]
  3. ADDERALL 10 [Concomitant]

REACTIONS (3)
  - ASPARTATE AMINOTRANSFERASE INCREASED [None]
  - BLOOD ALKALINE PHOSPHATASE INCREASED [None]
  - PRESCRIBED OVERDOSE [None]
